FAERS Safety Report 8490379-6 (Version None)
Quarter: 2012Q3

REPORT INFORMATION
  Report Type: 
  Country: None (occurrence: None)
  Receive Date: 20120705
  Receipt Date: 20120628
  Transmission Date: 20120928
  Serious: Yes (Other)
  Sender: FDA-Public Use
  Company Number: CA-PFIZER INC-2012067156

PATIENT

DRUGS (1)
  1. VENLAFAXINE HCL [Suspect]
     Dosage: UNK

REACTIONS (3)
  - FALL [None]
  - FRACTURE [None]
  - CONFUSIONAL STATE [None]
